FAERS Safety Report 6277495-4 (Version None)
Quarter: 2009Q3

REPORT INFORMATION
  Report Type: 
  Country: None (occurrence: None)
  Receive Date: 20090722
  Receipt Date: 20090713
  Transmission Date: 20100115
  Serious: Yes (Hospitalization, Other)
  Sender: FDA-Public Use
  Company Number: FR-CELGENEUS-056-21880-09050355

PATIENT
  Sex: Female
  Weight: 74 kg

DRUGS (5)
  1. REVLIMID [Suspect]
     Indication: MULTIPLE MYELOMA
     Route: 048
     Dates: start: 20081201
  2. REVLIMID [Suspect]
     Route: 048
     Dates: start: 20090413, end: 20090424
  3. REVLIMID [Suspect]
     Dosage: 9 CAPSULES
     Route: 048
     Dates: start: 20090425, end: 20090425
  4. BISOPROLOL FUMARATE [Concomitant]
     Indication: HYPERTENSION
     Route: 065
     Dates: start: 20080710
  5. SIMVASTATIN [Concomitant]
     Route: 065
     Dates: start: 20080710

REACTIONS (6)
  - ATRIAL FIBRILLATION [None]
  - MALAISE [None]
  - OVERDOSE [None]
  - PANCYTOPENIA [None]
  - PSYCHIATRIC DECOMPENSATION [None]
  - PULMONARY EMBOLISM [None]
